FAERS Safety Report 12182743 (Version 1)
Quarter: 2016Q1

REPORT INFORMATION
  Report Type: Spontaneous
  Country: US (occurrence: US)
  Receive Date: 20160316
  Receipt Date: 20160316
  Transmission Date: 20160526
  Serious: Yes (Death, Hospitalization)
  Sender: FDA-Public Use
  Company Number: US-ROCHE-1722570

PATIENT
  Age: 46 Year
  Sex: Female
  Weight: 72.56 kg

DRUGS (16)
  1. LIORESAL [Concomitant]
     Active Substance: BACLOFEN
  2. ALPRAZOLAM. [Concomitant]
     Active Substance: ALPRAZOLAM
     Route: 065
     Dates: start: 2014, end: 20160218
  3. VENLAFAXINE [Concomitant]
     Active Substance: VENLAFAXINE HYDROCHLORIDE
     Route: 065
     Dates: start: 20141201, end: 20160218
  4. DEPO-PROVERA [Concomitant]
     Active Substance: MEDROXYPROGESTERONE ACETATE
     Route: 065
     Dates: end: 20160218
  5. VITAMIN D3 [Concomitant]
     Active Substance: CHOLECALCIFEROL
     Route: 065
     Dates: start: 2014, end: 20160218
  6. BUSPIRONE [Concomitant]
     Active Substance: BUSPIRONE HYDROCHLORIDE
     Route: 065
     Dates: start: 2014
  7. LEVOTHYROXINE. [Concomitant]
     Active Substance: LEVOTHYROXINE
     Route: 065
     Dates: start: 1998, end: 20160218
  8. RITUXAN [Suspect]
     Active Substance: RITUXIMAB
     Indication: MULTIPLE SCLEROSIS
     Dosage: 500MG/50ML
     Route: 042
     Dates: start: 20160120
  9. RITUXAN [Suspect]
     Active Substance: RITUXIMAB
     Dosage: 500MG/50ML
     Route: 042
     Dates: start: 20160203
  10. TYSABRI [Suspect]
     Active Substance: NATALIZUMAB
     Indication: PRODUCT USED FOR UNKNOWN INDICATION
     Route: 065
     Dates: end: 201405
  11. ACETAMINOPHEN. [Concomitant]
     Active Substance: ACETAMINOPHEN
  12. EFFEXOR [Concomitant]
     Active Substance: VENLAFAXINE HYDROCHLORIDE
     Route: 065
     Dates: end: 20160218
  13. DONEPEZIL. [Concomitant]
     Active Substance: DONEPEZIL
     Route: 065
     Dates: start: 201409
  14. BACLOFEN. [Concomitant]
     Active Substance: BACLOFEN
     Route: 065
     Dates: start: 201401, end: 20160218
  15. AMANTADINE HCL [Concomitant]
     Active Substance: AMANTADINE HYDROCHLORIDE
     Route: 065
     Dates: start: 1999, end: 20160218
  16. FAMPRIDINE [Concomitant]
     Active Substance: DALFAMPRIDINE
     Route: 065
     Dates: start: 2013

REACTIONS (6)
  - Asthenia [Unknown]
  - Mental status changes [Fatal]
  - Urinary tract infection [Recovering/Resolving]
  - Progressive multifocal leukoencephalopathy [Fatal]
  - Multiple sclerosis [Fatal]
  - Sepsis [Fatal]

NARRATIVE: CASE EVENT DATE: 20160203
